FAERS Safety Report 4494327-5 (Version None)
Quarter: 2004Q4

REPORT INFORMATION
  Report Type: 
  Country: None (occurrence: None)
  Receive Date: 20041104
  Receipt Date: 20041104
  Transmission Date: 20050328
  Serious: No
  Sender: FDA-Public Use
  Company Number: None

PATIENT
  Sex: Female
  Weight: 61.6892 kg

DRUGS (6)
  1. TRIAZOLAM [Suspect]
     Indication: ANXIETY
     Dosage: 0.25 MG Q HS
     Dates: start: 20010601, end: 20011201
  2. TRIAZOLAM [Suspect]
     Indication: INSOMNIA
     Dosage: 0.25 MG Q HS
     Dates: start: 20010601, end: 20011201
  3. BUMEX [Concomitant]
  4. ACIPHEX [Concomitant]
  5. LISINOPRIL [Concomitant]
  6. ACTONEL [Concomitant]

REACTIONS (2)
  - DRUG INEFFECTIVE [None]
  - PHARMACEUTICAL PRODUCT COMPLAINT [None]
